FAERS Safety Report 6384473-3 (Version None)
Quarter: 2009Q4

REPORT INFORMATION
  Report Type: 
  Country: None (occurrence: None)
  Receive Date: 20091001
  Receipt Date: 20090923
  Transmission Date: 20100525
  Serious: Yes (Hospitalization)
  Sender: FDA-Public Use
  Company Number: AU-NOVOPROD-288457

PATIENT
  Sex: Male

DRUGS (7)
  1. LEVEMIR [Suspect]
     Indication: TYPE 2 DIABETES MELLITUS
     Dosage: 9 IU, QD
     Dates: start: 20090501
  2. ACTRAPID [Suspect]
     Indication: TYPE 2 DIABETES MELLITUS
     Dosage: APPROX 19 UNITS DAILY
     Dates: start: 20020107
  3. COVERSYL                           /00790701/ [Concomitant]
     Dosage: 4 MG/KG, UNK
     Dates: start: 20050301, end: 20080401
  4. COVERSYL                           /00790701/ [Concomitant]
     Dosage: 10 UNK, UNK
     Dates: start: 20080401
  5. EFEXOR                             /01233801/ [Concomitant]
     Dosage: 75 MG, UNK
     Dates: start: 20070501, end: 20071101
  6. EFEXOR                             /01233801/ [Concomitant]
     Dosage: 150 UNK, UNK
     Dates: start: 20071101
  7. CRESTOR [Concomitant]
     Dosage: 5 MG, UNK
     Dates: start: 20090401

REACTIONS (4)
  - ATRIAL FIBRILLATION [None]
  - DEVICE LEAKAGE [None]
  - HEART RATE IRREGULAR [None]
  - PRODUCT QUALITY ISSUE [None]
